FAERS Safety Report 7151989-1 (Version None)
Quarter: 2010Q4

REPORT INFORMATION
  Report Type: 
  Country: None (occurrence: None)
  Receive Date: 20101211
  Receipt Date: 20101203
  Transmission Date: 20110411
  Serious: Yes (Other)
  Sender: FDA-Public Use
  Company Number: FR-PFIZER INC-2010143631

PATIENT
  Age: 81 Year
  Sex: Female
  Weight: 64 kg

DRUGS (5)
  1. LYRICA [Suspect]
     Indication: PAIN
     Dosage: 50 MG MORNING + 150 MG EVENING
     Dates: start: 20100430
  2. VALACYCLOVIR HYDROCHLORIDE [Concomitant]
     Indication: HERPES ZOSTER OPHTHALMIC
  3. STALEVO 100 [Concomitant]
     Dosage: 1 DF, 3X/DAY
     Dates: start: 20100422
  4. ARICEPT [Concomitant]
     Dosage: 1 DF, 1X/DAY
     Dates: start: 20100101
  5. DEROXAT [Concomitant]
     Dosage: UNK
     Dates: start: 20100408

REACTIONS (2)
  - BLOOD AMYLASE INCREASED [None]
  - LIPASE INCREASED [None]
